FAERS Safety Report 11495890 (Version 1)
Quarter: 2015Q3

REPORT INFORMATION
  Report Type: Spontaneous
  Country: BR (occurrence: BR)
  Receive Date: 20150911
  Receipt Date: 20150911
  Transmission Date: 20151125
  Serious: No
  Sender: FDA-Public Use
  Company Number: BR-JNJFOC-20150905174

PATIENT
  Sex: Female

DRUGS (1)
  1. DURAGESIC D-TRANS [Suspect]
     Active Substance: FENTANYL
     Indication: HEADACHE
     Route: 062
     Dates: start: 2013

REACTIONS (4)
  - Drug ineffective [Unknown]
  - Headache [Not Recovered/Not Resolved]
  - Pain [Not Recovered/Not Resolved]
  - Medication error [Unknown]
